FAERS Safety Report 9265877 (Version 2)
Quarter: 2013Q2

REPORT INFORMATION
  Report Type: Spontaneous
  Country: US (occurrence: US)
  Receive Date: 20130501
  Receipt Date: 20130502
  Transmission Date: 20140414
  Serious: Yes (Hospitalization)
  Sender: FDA-Public Use
  Company Number: US-B.I. PHARMACEUTICALS,INC./RIDGEFIELD-2013-BI-11415BP

PATIENT
  Age: 67 Year
  Sex: Female
  Weight: 62 kg

DRUGS (6)
  1. SPIRIVA [Suspect]
     Indication: BRONCHITIS CHRONIC
     Dosage: 18 MCG
     Route: 055
     Dates: start: 201204, end: 201212
  2. SPIRIVA [Suspect]
     Dosage: 18 MCG
     Route: 055
     Dates: start: 2013
  3. SYNTHROID [Concomitant]
     Indication: THYROID DISORDER
     Dosage: 75 MCG
     Route: 048
  4. GABAPENTIN [Concomitant]
     Indication: ABDOMINAL DISCOMFORT
     Dosage: 1200 MG
     Route: 048
  5. NEBULIZER [Concomitant]
     Indication: SINUS DISORDER
     Route: 055
     Dates: start: 2011
  6. METOPROLOL [Concomitant]
     Indication: HYPERTENSION
     Dosage: 25 MG
     Route: 048

REACTIONS (7)
  - Pneumonia [Recovered/Resolved]
  - Product quality issue [Recovered/Resolved]
  - Product quality issue [Recovered/Resolved]
  - Seasonal allergy [Recovered/Resolved]
  - Osteoarthritis [Not Recovered/Not Resolved]
  - Burning sensation [Recovered/Resolved]
  - Blood pressure decreased [Unknown]
